FAERS Safety Report 6219582-2 (Version None)
Quarter: 2009Q2

REPORT INFORMATION
  Report Type: 
  Country: None (occurrence: None)
  Receive Date: 20090609
  Receipt Date: 20090603
  Transmission Date: 20091009
  Serious: Yes (Hospitalization)
  Sender: FDA-Public Use
  Company Number: CA-ASTRAZENECA-2009UW06065

PATIENT
  Age: 14350 Day
  Sex: Female

DRUGS (25)
  1. SEROQUEL XR [Suspect]
     Indication: SCHIZOPHRENIA
     Route: 048
     Dates: start: 20090203
  2. SEROQUEL XR [Suspect]
     Route: 048
     Dates: start: 20090204
  3. SEROQUEL XR [Suspect]
     Route: 048
     Dates: start: 20090304, end: 20090318
  4. SEROQUEL XR [Suspect]
     Route: 048
     Dates: start: 20090320, end: 20090416
  5. SEROQUEL XR [Suspect]
     Route: 048
     Dates: start: 20090417
  6. RISPERDAL [Concomitant]
     Indication: SCHIZOPHRENIA
     Route: 048
     Dates: start: 20080603, end: 20090202
  7. RISPERDAL [Concomitant]
     Route: 048
     Dates: start: 20090203, end: 20090203
  8. RISPERDAL [Concomitant]
     Route: 048
     Dates: start: 20090204, end: 20090204
  9. RISPERDAL [Concomitant]
     Route: 048
     Dates: start: 20090205, end: 20090205
  10. SYNTHROID [Concomitant]
     Indication: HYPOTHYROIDISM
     Route: 048
  11. ATIVAN [Concomitant]
     Indication: ANXIETY
     Route: 060
     Dates: start: 20090115
  12. ATIVAN [Concomitant]
     Indication: AGGRESSION
     Route: 060
     Dates: start: 20090115
  13. ATIVAN [Concomitant]
     Route: 060
     Dates: start: 20090319, end: 20090417
  14. ATIVAN [Concomitant]
     Route: 060
     Dates: start: 20090319, end: 20090417
  15. ZYPREXA [Concomitant]
     Indication: SCHIZOPHRENIA
     Route: 048
     Dates: start: 20090305, end: 20090305
  16. ZYPREXA [Concomitant]
     Indication: AGGRESSION
     Route: 048
     Dates: start: 20090305, end: 20090305
  17. ZYPREXA [Concomitant]
     Dosage: ZYDIS
     Route: 048
     Dates: start: 20090319, end: 20090319
  18. ZYPREXA [Concomitant]
     Dosage: ZYDIS
     Route: 048
     Dates: start: 20090319, end: 20090319
  19. ZYPREXA [Concomitant]
     Dosage: ZYDIS
     Route: 048
     Dates: start: 20090325, end: 20090325
  20. ZYPREXA [Concomitant]
     Dosage: ZYDIS
     Route: 048
     Dates: start: 20090325, end: 20090325
  21. ZYPREXA [Concomitant]
     Dosage: ZYDIS
     Route: 048
     Dates: start: 20090415, end: 20090416
  22. ZYPREXA [Concomitant]
     Dosage: ZYDIS
     Route: 048
     Dates: start: 20090415, end: 20090416
  23. ZYPREXA [Concomitant]
     Dosage: ZYDIS
     Route: 048
     Dates: start: 20090417, end: 20090417
  24. ZYPREXA [Concomitant]
     Dosage: ZYDIS
     Route: 048
     Dates: start: 20090417, end: 20090417
  25. NITROFURANTOIN [Concomitant]
     Indication: URINARY TRACT INFECTION
     Route: 048
     Dates: start: 20090308, end: 20090318

REACTIONS (1)
  - AGGRESSION [None]
